FAERS Safety Report 5602893-9 (Version None)
Quarter: 2008Q1

REPORT INFORMATION
  Report Type: 
  Country: None (occurrence: None)
  Receive Date: 20080125
  Receipt Date: 20080121
  Transmission Date: 20080703
  Serious: Yes (Hospitalization, Other)
  Sender: FDA-Public Use
  Company Number: JP-BOEHRINGER INGELHEIM PHARMACEUTICALS, INC.-2008-BP-00651NB

PATIENT
  Sex: Male
  Weight: 63 kg

DRUGS (3)
  1. MICARDIS [Suspect]
     Indication: HYPERTENSION
     Route: 048
     Dates: start: 20061207, end: 20070717
  2. FLUVOXAMINE MALEATE [Concomitant]
     Route: 048
     Dates: start: 20070114
  3. WARFARIN SODIUM [Concomitant]
     Route: 048
     Dates: start: 20051026

REACTIONS (1)
  - CONVULSION [None]
